FAERS Safety Report 6354962-6 (Version None)
Quarter: 2009Q3

REPORT INFORMATION
  Report Type: 
  Country: None (occurrence: None)
  Receive Date: 20090914
  Receipt Date: 20090908
  Transmission Date: 20100115
  Serious: Yes (Disabling, Other)
  Sender: FDA-Public Use
  Company Number: A0797320A

PATIENT
  Age: 52 Year
  Sex: Female
  Weight: 65.5 kg

DRUGS (4)
  1. TYKERB [Suspect]
     Indication: BREAST CANCER
     Dosage: 1250MG PER DAY
     Route: 048
     Dates: start: 20090715
  2. TAMOXIFEN CITRATE [Concomitant]
  3. CARBOPLATIN [Concomitant]
  4. TAXOTERE [Concomitant]

REACTIONS (7)
  - DEHYDRATION [None]
  - DIARRHOEA [None]
  - FATIGUE [None]
  - NAUSEA [None]
  - RASH [None]
  - VOMITING [None]
  - WEIGHT DECREASED [None]
